FAERS Safety Report 15631882 (Version 1)
Quarter: 2018Q4

REPORT INFORMATION
  Report Type: Report from Study
  Country: DE (occurrence: DE)
  Receive Date: 20181119
  Receipt Date: 20181119
  Transmission Date: 20190205
  Serious: Yes (Hospitalization)
  Sender: FDA-Public Use
  Company Number: DE-ROCHE-2214640

PATIENT
  Age: 47 Year
  Sex: Female
  Weight: 70.8 kg

DRUGS (6)
  1. PERTUZUMAB. [Suspect]
     Active Substance: PERTUZUMAB
     Indication: HER-2 POSITIVE BREAST CANCER
     Dosage: LOADING DOSE
     Route: 042
     Dates: start: 20171115, end: 20171115
  2. TRASTUZUMAB. [Suspect]
     Active Substance: TRASTUZUMAB
     Dosage: MAINTENANCE DOSE 430 MG (6 MG/KG)?THE MOST RECENT DOSE OF TRASTUZUMAB PRIROR TO SAE: 05/OCT/2018
     Route: 042
     Dates: start: 20171206, end: 20181105
  3. TAMOXIFEN [Suspect]
     Active Substance: TAMOXIFEN
     Indication: HER-2 POSITIVE BREAST CANCER
     Dosage: THE MOST RECENT DOSE OF TAMIXIFEN PRIROR TO SAE: 21/OCT/2018?FOR A TOTAL OF 40 WEEKS IN THE ADJUVANT
     Route: 048
     Dates: start: 20171115
  4. CHININ [Concomitant]
     Active Substance: QUININE HYDROCHLORIDE
     Route: 065
     Dates: start: 20181005
  5. TRASTUZUMAB. [Suspect]
     Active Substance: TRASTUZUMAB
     Indication: HER-2 POSITIVE BREAST CANCER
     Dosage: LOADING DOSE
     Route: 042
     Dates: start: 20171115, end: 20171115
  6. PERTUZUMAB. [Suspect]
     Active Substance: PERTUZUMAB
     Dosage: MAINTENANCE DOSE?THE MOST RECENT DOSE OF PERTUZUMAB PRIROR TO SAE: 05/OCT/2018
     Route: 042
     Dates: start: 20171206, end: 20181105

REACTIONS (1)
  - Alveolitis allergic [Recovered/Resolved with Sequelae]

NARRATIVE: CASE EVENT DATE: 20181021
